FAERS Safety Report 25465731 (Version 1)
Quarter: 2025Q2

REPORT INFORMATION
  Report Type: Spontaneous
  Country: GB (occurrence: GB)
  Receive Date: 20250623
  Receipt Date: 20250623
  Transmission Date: 20250716
  Serious: Yes (Other)
  Sender: ACCORD
  Company Number: None

PATIENT
  Age: 55 Year
  Sex: Female
  Weight: 79 kg

DRUGS (4)
  1. ARIPIPRAZOLE [Suspect]
     Active Substance: ARIPIPRAZOLE
     Indication: Adverse drug reaction
     Dates: start: 20231001
  2. RISPERIDONE [Suspect]
     Active Substance: RISPERIDONE
     Indication: Adverse drug reaction
     Dates: start: 20210501
  3. SIMVASTATIN [Concomitant]
     Active Substance: SIMVASTATIN
     Indication: Blood cholesterol increased
  4. CLONIDINE [Concomitant]
     Active Substance: CLONIDINE
     Indication: Hypertension

REACTIONS (1)
  - Adenoma benign [Not Recovered/Not Resolved]

NARRATIVE: CASE EVENT DATE: 20210601
